FAERS Safety Report 17427767 (Version 3)
Quarter: 2020Q4

REPORT INFORMATION
  Report Type: Spontaneous
  Country: JP (occurrence: JP)
  Receive Date: 20200218
  Receipt Date: 20201130
  Transmission Date: 20210113
  Serious: Yes (Hospitalization, Other)
  Sender: FDA-Public Use
  Company Number: NVSJ2020JP001817

PATIENT
  Sex: Male

DRUGS (4)
  1. NEORAL [Suspect]
     Active Substance: CYCLOSPORINE
     Indication: PRURIGO
     Dosage: 150 MG
     Route: 048
     Dates: start: 20190624, end: 20191128
  2. EPADEL [Concomitant]
     Active Substance: ICOSAPENT
     Indication: PRODUCT USED FOR UNKNOWN INDICATION
     Dosage: UNK
     Route: 065
  3. NEORAL [Suspect]
     Active Substance: CYCLOSPORINE
     Indication: DERMATITIS ATOPIC
     Dosage: 100 MG
     Route: 048
     Dates: start: 20190517, end: 20190623
  4. NEORAL [Suspect]
     Active Substance: CYCLOSPORINE
     Dosage: 200 MG
     Route: 048
     Dates: start: 20191129, end: 20200129

REACTIONS (6)
  - Dermatitis atopic [Unknown]
  - Concomitant disease aggravated [Recovered/Resolved]
  - Prurigo [Unknown]
  - Lymphadenopathy [Recovered/Resolved]
  - Eosinophil count increased [Recovered/Resolved]
  - Lymphoma [Recovered/Resolved]

NARRATIVE: CASE EVENT DATE: 20191213
